FAERS Safety Report 7502214-0 (Version None)
Quarter: 2011Q2

REPORT INFORMATION
  Report Type: 
  Country: None (occurrence: None)
  Receive Date: 20110523
  Receipt Date: 20110523
  Transmission Date: 20111010
  Serious: Yes (Hospitalization)
  Sender: FDA-Public Use
  Company Number: None

PATIENT
  Age: 40 Year
  Sex: Male
  Weight: 67.4 kg

DRUGS (1)
  1. ACETAMINOPHEN, ASPIRIN, AND CODEINE PHOSPHATE [Suspect]
     Indication: HEADACHE
     Dates: start: 19930101, end: 20110331

REACTIONS (1)
  - GASTRIC HAEMORRHAGE [None]
